FAERS Safety Report 9033380 (Version 4)
Quarter: 2014Q3

REPORT INFORMATION
  Report Type: Spontaneous
  Country: US (occurrence: US)
  Receive Date: 20130128
  Receipt Date: 20140828
  Transmission Date: 20150326
  Serious: Yes (Hospitalization, Other)
  Sender: FDA-Public Use
  Company Number: US-009507513-2012SP003424

PATIENT
  Sex: Female
  Weight: 77.55 kg

DRUGS (1)
  1. NUVARING [Suspect]
     Active Substance: ETHINYL ESTRADIOL\ETONOGESTREL
     Indication: CONTRACEPTION
     Dosage: LEAVE IN 3 WEEKS/REMOVE 1 WEEK
     Route: 067
     Dates: start: 20090928, end: 201001

REACTIONS (16)
  - Pulmonary embolism [Unknown]
  - Bipolar disorder [Unknown]
  - Otitis externa [Unknown]
  - Wrist fracture [Unknown]
  - Arthralgia [Unknown]
  - Tachycardia [Recovering/Resolving]
  - Convulsion [Unknown]
  - Chest discomfort [Unknown]
  - Depression [Unknown]
  - Female sterilisation [Unknown]
  - Chest pain [Recovering/Resolving]
  - Anxiety [Unknown]
  - Tooth fracture [Unknown]
  - Toothache [Unknown]
  - Depression [Unknown]
  - Substance abuse [Unknown]

NARRATIVE: CASE EVENT DATE: 201001
